FAERS Safety Report 5562477-8 (Version None)
Quarter: 2007Q4

REPORT INFORMATION
  Report Type: 
  Country: None (occurrence: None)
  Receive Date: 20071215
  Receipt Date: 20070111
  Transmission Date: 20080405
  Serious: No
  Sender: FDA-Public Use
  Company Number: US-AMGEN-US194947

PATIENT
  Sex: Female
  Weight: 76.7 kg

DRUGS (4)
  1. ENBREL [Suspect]
     Indication: PSORIASIS
     Route: 058
     Dates: start: 20060918
  2. ZOCOR [Concomitant]
     Route: 065
     Dates: start: 20020101
  3. UNITHROID [Concomitant]
     Route: 065
     Dates: start: 19980101
  4. PAROXETINE [Concomitant]
     Route: 065
     Dates: start: 20030101

REACTIONS (1)
  - VAGINAL HAEMORRHAGE [None]
